FAERS Safety Report 17702991 (Version 2)
Quarter: 2020Q2

REPORT INFORMATION
  Report Type: Spontaneous
  Country: ES (occurrence: ES)
  Receive Date: 20200424
  Receipt Date: 20200427
  Transmission Date: 20200714
  Serious: Yes (Hospitalization)
  Sender: FDA-Public Use
  Company Number: ES-TEVA-2020-ES-1226210

PATIENT
  Age: 53 Year
  Sex: Male

DRUGS (6)
  1. AZITROMICINA (7019A) [Suspect]
     Active Substance: AZITHROMYCIN
     Indication: PNEUMONIA
     Dosage: 500 MILLIGRAM DAILY;
     Route: 048
     Dates: start: 20200325, end: 20200329
  2. AZITROMICINA (7019A) [Interacting]
     Active Substance: AZITHROMYCIN
     Indication: CORONAVIRUS INFECTION
  3. DOLQUINE 200 MG COMPRIMIDOS RECUBIERTOS, 30 COMPRIMIDOS [Interacting]
     Active Substance: HYDROXYCHLOROQUINE SULFATE
     Indication: PNEUMONIA
     Dosage: 400 MILLIGRAM DAILY;
     Route: 048
     Dates: start: 20200325, end: 20200329
  4. DOLQUINE 200 MG COMPRIMIDOS RECUBIERTOS, 30 COMPRIMIDOS [Interacting]
     Active Substance: HYDROXYCHLOROQUINE SULFATE
     Indication: CORONAVIRUS INFECTION
  5. DEXAMETASONA (722A) [Concomitant]
     Active Substance: DEXAMETHASONE
     Route: 042
     Dates: start: 20200326, end: 20200327
  6. PROPOFOL 2% INYECTABLE BAXTER, 1 [Interacting]
     Active Substance: PROPOFOL
     Indication: SEDATION
     Dosage: SEDATION
     Route: 042
     Dates: start: 20200328, end: 20200328

REACTIONS (2)
  - Propofol infusion syndrome [Recovering/Resolving]
  - Drug interaction [Unknown]

NARRATIVE: CASE EVENT DATE: 20200328
